FAERS Safety Report 4316881-6 (Version None)
Quarter: 2004Q1

REPORT INFORMATION
  Report Type: 
  Country: None (occurrence: None)
  Receive Date: 20040312
  Receipt Date: 20040312
  Transmission Date: 20041129
  Serious: Yes (Life-Threatening, Hospitalization)
  Sender: FDA-Public Use
  Company Number: None

PATIENT
  Age: 92 Year
  Sex: Female

DRUGS (1)
  1. ZYVOX [Suspect]
     Indication: OSTEOMYELITIS
     Dosage: 600 MG QD PO
     Route: 048

REACTIONS (9)
  - ABDOMINAL PAIN [None]
  - ANAEMIA [None]
  - ANION GAP INCREASED [None]
  - BLOOD SODIUM DECREASED [None]
  - MENTAL STATUS CHANGES [None]
  - NAUSEA [None]
  - THROMBOCYTOPENIA [None]
  - URINE ANALYSIS ABNORMAL [None]
  - VOMITING [None]
